FAERS Safety Report 20587402 (Version 5)
Quarter: 2024Q4

REPORT INFORMATION
  Report Type: Report from Study
  Country: MX (occurrence: MX)
  Receive Date: 20220314
  Receipt Date: 20241015
  Transmission Date: 20250115
  Serious: Yes (Other)
  Sender: NOVARTIS
  Company Number: MX-NOVARTISPH-NVSC2022MX057909

PATIENT
  Sex: Female
  Weight: 95 kg

DRUGS (14)
  1. EXFORGE HCT [Suspect]
     Active Substance: AMLODIPINE BESYLATE\HYDROCHLOROTHIAZIDE\VALSARTAN
     Indication: Blood pressure abnormal
     Dosage: 1 DOSAGE FORM, QD (320 MG)
     Route: 048
     Dates: start: 2013, end: 2013
  2. EXFORGE HCT [Suspect]
     Active Substance: AMLODIPINE BESYLATE\HYDROCHLOROTHIAZIDE\VALSARTAN
     Indication: Hypertension
     Dosage: 1 DOSAGE FORM, QD (10MG/320 MG/25 MG)
     Route: 048
     Dates: start: 201301, end: 201301
  3. EXFORGE HCT [Suspect]
     Active Substance: AMLODIPINE BESYLATE\HYDROCHLOROTHIAZIDE\VALSARTAN
     Dosage: 1 DOSAGE FORM, QD (10/320/25 MG)
     Route: 048
     Dates: end: 201303
  4. EXFORGE HCT [Suspect]
     Active Substance: AMLODIPINE BESYLATE\HYDROCHLOROTHIAZIDE\VALSARTAN
     Dosage: 1 DOSAGE FORM, QD (STRENGTH: 25/320 MG ALSO MENTIONED 10/320/25 MG)
     Route: 048
     Dates: start: 2013, end: 2017
  5. DIOVAN [Suspect]
     Active Substance: VALSARTAN
     Indication: Hypertension
     Dosage: 1 DOSAGE FORM, (320 MG) QD
     Route: 048
     Dates: start: 201302, end: 202409
  6. DIOVAN [Suspect]
     Active Substance: VALSARTAN
     Dosage: 1 DOSAGE FORM, QD
     Route: 048
     Dates: start: 201303
  7. DIOVAN [Suspect]
     Active Substance: VALSARTAN
     Dosage: 1 DOSAGE FORM, QD
     Route: 048
     Dates: start: 2013
  8. DIOVAN [Suspect]
     Active Substance: VALSARTAN
     Dosage: 1 DOSAGE FORM, (320 MG) QD
     Route: 048
     Dates: start: 202409
  9. EXFORGE [Suspect]
     Active Substance: AMLODIPINE BESYLATE\VALSARTAN
     Indication: Product used for unknown indication
     Dosage: UNK
     Route: 065
  10. NEBIVOLOL HYDROCHLORIDE [Suspect]
     Active Substance: NEBIVOLOL HYDROCHLORIDE
     Indication: Hypertension
     Dosage: 1 DOSAGE FORM, QD
     Route: 048
     Dates: start: 20130303, end: 2015
  11. ATORVASTATIN [Concomitant]
     Active Substance: ATORVASTATIN
     Indication: Blood triglycerides increased
     Dosage: 1 DOSAGE FORM, QD
     Route: 065
     Dates: start: 2013, end: 2015
  12. ASPIRIN [Concomitant]
     Active Substance: ASPIRIN
     Indication: Anticoagulant therapy
     Dosage: 1 DOSAGE FORM, QD
     Route: 048
     Dates: start: 2013, end: 2015
  13. ASPIRIN [Concomitant]
     Active Substance: ASPIRIN
     Dosage: 1 DOSAGE FORM, QD
     Route: 048
     Dates: start: 201301, end: 2021
  14. AMITRIPTYLINE HYDROCHLORIDE\DIAZEPAM\PERPHENAZINE [Concomitant]
     Active Substance: AMITRIPTYLINE HYDROCHLORIDE\DIAZEPAM\PERPHENAZINE
     Indication: Sleep disorder
     Dosage: 0.5 DOSAGE FORM, QD (HALF TABLET)
     Route: 048
     Dates: start: 2013, end: 2016

REACTIONS (12)
  - Thrombosis [Recovered/Resolved]
  - Asphyxia [Unknown]
  - Pain in extremity [Unknown]
  - Eye swelling [Recovered/Resolved]
  - Tachycardia [Recovered/Resolved]
  - Hypertension [Unknown]
  - Headache [Recovered/Resolved]
  - Tinnitus [Recovered/Resolved]
  - Visual impairment [Recovered/Resolved]
  - Headache [Recovered/Resolved]
  - Headache [Recovered/Resolved]
  - Blood pressure increased [Recovered/Resolved]

NARRATIVE: CASE EVENT DATE: 20130101
